FAERS Safety Report 7469491-6 (Version None)
Quarter: 2011Q2

REPORT INFORMATION
  Report Type: 
  Country: None (occurrence: None)
  Receive Date: 20110429
  Receipt Date: 20110415
  Transmission Date: 20111010
  Serious: Yes (Hospitalization)
  Sender: FDA-Public Use
  Company Number: 031378

PATIENT
  Sex: Female
  Weight: 46.7 kg

DRUGS (1)
  1. CIMZIA [Suspect]
     Indication: CROHN'S DISEASE
     Dosage: 400 MG 1X4 WEEKS, SUBCUTANEOUS
     Route: 058
     Dates: start: 20090504, end: 20110317

REACTIONS (2)
  - OFF LABEL USE [None]
  - INTESTINAL OPERATION [None]
